FAERS Safety Report 24907812 (Version 3)
Quarter: 2025Q2

REPORT INFORMATION
  Report Type: Report from Study
  Country: US (occurrence: US)
  Receive Date: 20250131
  Receipt Date: 20250403
  Transmission Date: 20250716
  Serious: Yes (Hospitalization)
  Sender: ABBVIE
  Company Number: US-ABBVIE-6107998

PATIENT
  Age: 88 Year
  Sex: Female

DRUGS (2)
  1. HUMIRA [Suspect]
     Active Substance: ADALIMUMAB
     Indication: Crohn^s disease
     Dosage: FORM STRENGTH- 40 MG
     Route: 058
     Dates: start: 2022, end: 20241202
  2. HUMIRA [Suspect]
     Active Substance: ADALIMUMAB
     Route: 058
     Dates: start: 2021, end: 2022

REACTIONS (5)
  - Urinary tract infection [Recovering/Resolving]
  - Back pain [Recovering/Resolving]
  - Sepsis [Recovering/Resolving]
  - Anal incontinence [Unknown]
  - Myelitis [Unknown]

NARRATIVE: CASE EVENT DATE: 20241201
